FAERS Safety Report 5268623-8 (Version None)
Quarter: 2007Q1

REPORT INFORMATION
  Report Type: 
  Country: None (occurrence: None)
  Receive Date: 20070313
  Receipt Date: 20070228
  Transmission Date: 20070707
  Serious: Yes (Hospitalization)
  Sender: FDA-Public Use
  Company Number: E2090-00189-SPO-JP

PATIENT
  Sex: Female

DRUGS (2)
  1. ZONISAMIDE [Suspect]
     Indication: HIPPOCAMPAL SCLEROSIS
     Dosage: ORAL
     Route: 048
  2. NARON-ACE (NARON ACE) [Concomitant]

REACTIONS (3)
  - DRUG HYPERSENSITIVITY [None]
  - HEPATIC FUNCTION ABNORMAL [None]
  - LYMPHOCYTE MORPHOLOGY ABNORMAL [None]
